FAERS Safety Report 21150098 (Version 1)
Quarter: 2022Q3

REPORT INFORMATION
  Report Type: Spontaneous
  Country: ID (occurrence: None)
  Receive Date: 20220729
  Receipt Date: 20220729
  Transmission Date: 20221027
  Serious: Yes (Other)
  Sender: FDA-Public Use
  Company Number: 2022A268725

PATIENT
  Age: 35 Year
  Sex: Male

DRUGS (2)
  1. OSIMERTINIB [Suspect]
     Active Substance: OSIMERTINIB
     Route: 048
  2. AFATINIB [Concomitant]
     Active Substance: AFATINIB

REACTIONS (2)
  - Cough [Recovered/Resolved]
  - Chest pain [Recovered/Resolved]
